FAERS Safety Report 7880380-5 (Version None)
Quarter: 2011Q4

REPORT INFORMATION
  Report Type: 
  Country: None (occurrence: None)
  Receive Date: 20111101
  Receipt Date: 20111018
  Transmission Date: 20120403
  Serious: Yes (Hospitalization)
  Sender: FDA-Public Use
  Company Number: PHHO2011US16148

PATIENT
  Sex: Male
  Weight: 86.5 kg

DRUGS (21)
  1. ADALAT [Concomitant]
  2. BACTRIM [Concomitant]
  3. LANTUS [Concomitant]
  4. RENVELA [Concomitant]
  5. IMODIUM [Concomitant]
  6. ASPIRIN [Concomitant]
  7. LABETALOL HCL [Concomitant]
  8. SIMVASTATIN [Concomitant]
  9. CERTICAN [Suspect]
     Indication: RENAL TRANSPLANT
     Dosage: 3.75 MG, BID
     Route: 048
     Dates: start: 20110709, end: 20110916
  10. LASIX [Concomitant]
  11. FERROUS SULFATE TAB [Concomitant]
  12. PREDNISONE [Suspect]
     Dosage: UNK
     Dates: start: 20110714
  13. CERTICAN [Suspect]
     Dosage: 3.75 MG, BID
     Route: 048
     Dates: start: 20111003
  14. PRILOSEC [Concomitant]
  15. VALCYTE [Concomitant]
  16. NYSTATIN [Concomitant]
  17. PROGRAF [Suspect]
     Indication: RENAL TRANSPLANT
     Dosage: UNK
     Dates: start: 20110709
  18. CLONIDINE [Concomitant]
  19. LOPRESSOR [Concomitant]
  20. SODIUM BICARBONATE [Concomitant]
  21. ARANESP [Concomitant]

REACTIONS (3)
  - CONCOMITANT DISEASE PROGRESSION [None]
  - HYPERKALAEMIA [None]
  - BRONCHITIS [None]
